FAERS Safety Report 8342722-6 (Version None)
Quarter: 2012Q2

REPORT INFORMATION
  Report Type: 
  Country: None (occurrence: None)
  Receive Date: 20120503
  Receipt Date: 20110509
  Transmission Date: 20120825
  Serious: Yes (Other)
  Sender: FDA-Public Use
  Company Number: IN-022717

PATIENT
  Age: 57 Year
  Sex: Male

DRUGS (4)
  1. (CHLORAMBUCIL) [Suspect]
     Indication: CHRONIC LYMPHOCYTIC LEUKAEMIA
     Dosage: 10 MG/M2 DAYS 1-7 EVERY DAYS ORAL
     Route: 048
     Dates: start: 20110324
  2. (ALBENDAZOLE) [Concomitant]
  3. (OFATUMUMAB) [Suspect]
     Indication: CHRONIC LYMPHOCYTIC LEUKAEMIA
     Dosage: SEE IMAGE
     Route: 042
     Dates: start: 20110324
  4. FOLIC ACID [Concomitant]

REACTIONS (6)
  - ASCARIASIS [None]
  - PALLOR [None]
  - PLATELET COUNT DECREASED [None]
  - WHITE BLOOD CELL COUNT DECREASED [None]
  - ANAEMIA [None]
  - FAECES DISCOLOURED [None]
